FAERS Safety Report 21775750 (Version 1)
Quarter: 2022Q4

REPORT INFORMATION
  Report Type: Spontaneous
  Country: MX (occurrence: MX)
  Receive Date: 20221226
  Receipt Date: 20221226
  Transmission Date: 20230113
  Serious: Yes (Other)
  Sender: FDA-Public Use
  Company Number: MX-BAYER-2022A173167

PATIENT
  Age: 72 Year
  Sex: Male

DRUGS (1)
  1. XARELTO [Suspect]
     Active Substance: RIVAROXABAN
     Indication: Atrial fibrillation
     Dosage: 1 DF, QD
     Route: 048
     Dates: end: 20221209

REACTIONS (3)
  - Gastrointestinal haemorrhage [Unknown]
  - Gastritis erosive [Unknown]
  - Ulcerative gastritis [Unknown]

NARRATIVE: CASE EVENT DATE: 20221209
